FAERS Safety Report 6926010-8 (Version None)
Quarter: 2010Q3

REPORT INFORMATION
  Report Type: 
  Country: None (occurrence: None)
  Receive Date: 20100816
  Receipt Date: 20100806
  Transmission Date: 20110219
  Serious: Yes (Hospitalization, Other)
  Sender: FDA-Public Use
  Company Number: US-WYE-H16800910

PATIENT
  Sex: Male
  Weight: 89.89 kg

DRUGS (9)
  1. AMIODARONE [Suspect]
     Indication: ARRHYTHMIA
     Dosage: UNSPECIFIED
     Route: 048
     Dates: start: 20080101, end: 20100517
  2. COUMADIN [Concomitant]
     Dosage: UNSPECIFIED
     Dates: end: 20100101
  3. HYDRALAZINE [Concomitant]
  4. FISH OIL [Concomitant]
  5. CARVEDILOL [Concomitant]
  6. AMLODIPINE [Concomitant]
  7. COENZYME Q10 [Concomitant]
  8. DRONEDARONE HYDROCHLORIDE [Suspect]
     Indication: ATRIAL FIBRILLATION
     Dosage: UNSPECIFIED
     Dates: start: 20100601, end: 20100101
  9. LASIX [Concomitant]

REACTIONS (18)
  - ATRIAL FIBRILLATION [None]
  - BALANCE DISORDER [None]
  - COLON CANCER [None]
  - CONDITION AGGRAVATED [None]
  - CONFUSIONAL STATE [None]
  - GAIT DISTURBANCE [None]
  - HYPOAESTHESIA [None]
  - HYPOTENSION [None]
  - IRRITABILITY [None]
  - MUSCULAR WEAKNESS [None]
  - PAIN IN EXTREMITY [None]
  - PHOTOPHOBIA [None]
  - PNEUMONIA [None]
  - RASH [None]
  - SKIN DISCOLOURATION [None]
  - SKIN HAEMORRHAGE [None]
  - TREMOR [None]
  - VISION BLURRED [None]
